FAERS Safety Report 6177672-7 (Version None)
Quarter: 2009Q2

REPORT INFORMATION
  Report Type: 
  Country: None (occurrence: None)
  Receive Date: 20090501
  Receipt Date: 20090501
  Transmission Date: 20091009
  Serious: Yes (Life-Threatening, Hospitalization)
  Sender: FDA-Public Use
  Company Number: None

PATIENT
  Age: 25 Year
  Sex: Female
  Weight: 42.6 kg

DRUGS (9)
  1. HEPARIN [Suspect]
     Indication: INTRACARDIAC THROMBUS
     Dosage: 1600 UNITS/HR, IV CONTINUOUS INFUSION
     Route: 042
     Dates: start: 20090119
  2. TACROLIMUS [Concomitant]
  3. METOPROLOL [Concomitant]
  4. BISACODYL [Concomitant]
  5. CALCIUM CARBONATE [Concomitant]
  6. DOCUSATE SODIUM [Concomitant]
  7. HYDROMORPHONE HCL [Concomitant]
  8. MAGNESIUM OXIDE [Concomitant]
  9. POTASSIUM CHLORIDE [Concomitant]

REACTIONS (3)
  - ACTIVATED PARTIAL THROMBOPLASTIN TIME PROLONGED [None]
  - CEREBRAL HAEMORRHAGE [None]
  - SUBARACHNOID HAEMORRHAGE [None]
